FAERS Safety Report 9788545 (Version 2)
Quarter: 2014Q1

REPORT INFORMATION
  Report Type: Other
  Country: TR (occurrence: TR)
  Receive Date: 20131230
  Receipt Date: 20140102
  Transmission Date: 20141002
  Serious: Yes (Other)
  Sender: FDA-Public Use
  Company Number: TR-BRISTOL-MYERS SQUIBB COMPANY-19951789

PATIENT
  Sex: 0

DRUGS (2)
  1. EFAVIRENZ TABS [Suspect]
     Indication: HIV INFECTION
     Route: 048
  2. TENOFOVIR DF + EMTRICITABINE [Concomitant]

REACTIONS (1)
  - Osteonecrosis [Recovered/Resolved]
